FAERS Safety Report 18324719 (Version 1)
Quarter: 2020Q3

REPORT INFORMATION
  Report Type: Spontaneous
  Country: US (occurrence: US)
  Receive Date: 20200929
  Receipt Date: 20200929
  Transmission Date: 20201103
  Serious: Yes (Hospitalization, Other)
  Sender: FDA-Public Use
  Company Number: None

PATIENT
  Age: 74 Year
  Sex: Male
  Weight: 78.6 kg

DRUGS (13)
  1. DEXAMETHASONE 6MG [Concomitant]
     Dates: start: 20200925
  2. OXYCODONE IR 5 MG [Concomitant]
     Dates: start: 20200925
  3. POLYETHYLENE GLYCOL 17G [Concomitant]
     Dates: start: 20200924
  4. REMDESIVIR. [Suspect]
     Active Substance: REMDESIVIR
     Indication: COVID-19
     Route: 042
  5. K PHOS NEUTRAL 155?852?130MG [Concomitant]
     Dates: start: 20200928
  6. PROPOFOL INFUSION [Concomitant]
     Active Substance: PROPOFOL
     Dates: start: 20200924
  7. VITAMIN D 25 MCG [Concomitant]
     Dates: start: 20200925
  8. ZINC SULFATE. [Concomitant]
     Active Substance: ZINC SULFATE
     Dates: start: 20200925
  9. FENTANYL INFUSION [Concomitant]
     Active Substance: FENTANYL
     Dates: start: 20200925
  10. CEFEPIME 2G IN 100ML [Concomitant]
     Dates: start: 20200926
  11. ATORVASTATIN 20MG [Concomitant]
     Active Substance: ATORVASTATIN
     Dates: start: 20200925
  12. ENOXAPARIN 40MG [Concomitant]
     Active Substance: ENOXAPARIN
     Dates: start: 20200926
  13. PANTOPRAZOLE 40MG [Concomitant]
     Active Substance: PANTOPRAZOLE SODIUM
     Dates: start: 20200924

REACTIONS (2)
  - Aspartate aminotransferase increased [None]
  - Therapy cessation [None]

NARRATIVE: CASE EVENT DATE: 20200929
